FAERS Safety Report 23263115 (Version 1)
Quarter: 2023Q4

REPORT INFORMATION
  Report Type: Spontaneous
  Country: US (occurrence: None)
  Receive Date: 20231205
  Receipt Date: 20231205
  Transmission Date: 20240110
  Serious: Yes (Hospitalization)
  Sender: FDA-Public Use
  Company Number: None

PATIENT
  Sex: Male
  Weight: 87.5 kg

DRUGS (1)
  1. CISPLATIN [Suspect]
     Active Substance: CISPLATIN
     Dates: end: 20230726

REACTIONS (9)
  - Radiation mucositis [None]
  - Dysphagia [None]
  - Aphonia [None]
  - Neutropenia [None]
  - Hypovolaemia [None]
  - Failure to thrive [None]
  - Weight decreased [None]
  - Malnutrition [None]
  - Dysphagia [None]

NARRATIVE: CASE EVENT DATE: 20230914
